FAERS Safety Report 15085221 (Version 1)
Quarter: 2018Q2

REPORT INFORMATION
  Report Type: Spontaneous
  Country: US (occurrence: US)
  Receive Date: 20180628
  Receipt Date: 20180628
  Transmission Date: 20180711
  Serious: No
  Sender: FDA-Public Use
  Company Number: US-BIOGEN-2018BI00584106

PATIENT
  Sex: Female

DRUGS (1)
  1. AVONEX [Suspect]
     Active Substance: INTERFERON BETA-1A
     Indication: MULTIPLE SCLEROSIS
     Route: 065
     Dates: start: 20080328, end: 20081222

REACTIONS (11)
  - Multiple sclerosis [Not Recovered/Not Resolved]
  - Vomiting [Unknown]
  - Dyspnoea [Recovered/Resolved]
  - Drug intolerance [Unknown]
  - Fall [Recovered/Resolved]
  - Musculoskeletal pain [Not Recovered/Not Resolved]
  - Cough [Unknown]
  - Hyperhidrosis [Unknown]
  - Drug ineffective [Unknown]
  - Urinary incontinence [Recovered/Resolved]
  - Anal incontinence [Recovered/Resolved]

NARRATIVE: CASE EVENT DATE: 2008
